FAERS Safety Report 4915173-1 (Version None)
Quarter: 2006Q1

REPORT INFORMATION
  Report Type: 
  Country: None (occurrence: None)
  Receive Date: 20060216
  Receipt Date: 20060216
  Transmission Date: 20060701
  Serious: Yes (Hospitalization)
  Sender: FDA-Public Use
  Company Number: None

PATIENT
  Sex: Male
  Weight: 71.6683 kg

DRUGS (1)
  1. AUGMENTIN [Suspect]
     Indication: ANTI-INFECTIVE THERAPY
     Dosage: UNKNOWN PO PRIOR TO ADMISSION
     Route: 048

REACTIONS (1)
  - SWOLLEN TONGUE [None]
